FAERS Safety Report 23600382 (Version 3)
Quarter: 2024Q2

REPORT INFORMATION
  Report Type: Spontaneous
  Country: TR (occurrence: TR)
  Receive Date: 20240306
  Receipt Date: 20240402
  Transmission Date: 20240716
  Serious: No
  Sender: FDA-Public Use
  Company Number: TR-PFIZER INC-PV202400020696

PATIENT

DRUGS (1)
  1. ENBREL [Suspect]
     Active Substance: ETANERCEPT
     Indication: Juvenile idiopathic arthritis
     Dosage: 50 MG, WEEKLY
     Dates: start: 2023

REACTIONS (5)
  - Device difficult to use [Unknown]
  - Device issue [Unknown]
  - Injection site pain [Unknown]
  - Tremor [Unknown]
  - Injection site haemorrhage [Unknown]
